FAERS Safety Report 4510992-8 (Version None)
Quarter: 2004Q4

REPORT INFORMATION
  Report Type: 
  Country: None (occurrence: None)
  Receive Date: 20040928
  Receipt Date: 20040723
  Transmission Date: 20050328
  Serious: No
  Sender: FDA-Public Use
  Company Number: 04P-163-0268019-00

PATIENT
  Age: 69 Year
  Sex: Female
  Weight: 69.8539 kg

DRUGS (26)
  1. HUMIRA [Suspect]
     Indication: RHEUMATOID ARTHRITIS
     Dosage: SEE IMAGE
     Dates: start: 20040404, end: 20040530
  2. HUMIRA [Suspect]
     Dosage: 40 MG, 1 IN 2 WK, INJECTION
     Dates: start: 20031101, end: 20040404
  3. FOLIC ACID [Concomitant]
  4. VICODIN [Concomitant]
  5. CARISOPRODOL [Concomitant]
  6. ASPIRIN [Concomitant]
  7. PILOCARPINE HYDROCHLORIDE [Concomitant]
  8. TIAGABINE HYDROCHLORIDE [Concomitant]
  9. LIDODERM [Concomitant]
  10. LEVOTHYROXINE SODIUM [Concomitant]
  11. CALCITONIN-SALMON [Concomitant]
  12. OXYTROL [Concomitant]
  13. ZOMIG-ZMT [Concomitant]
  14. BUSPIRONE HCL [Concomitant]
  15. FLUOXETINE HYDROCHLORIDE [Concomitant]
  16. FENTANYL [Concomitant]
  17. HYOSCINE HBR HYT [Concomitant]
  18. LOSARTAN POTASSIUM [Concomitant]
  19. FAMOTIDINE [Concomitant]
  20. NITROGLYCERIN [Concomitant]
  21. INFLIXIMAB [Concomitant]
  22. PARACETAMOL [Concomitant]
  23. GLUCOSAMINE [Concomitant]
  24. CORAL CALCIUM [Concomitant]
  25. SENIOR MULTIVITAMIN [Concomitant]
  26. B-KOMPLEX ^LECIVA^ [Concomitant]

REACTIONS (1)
  - DRUG INEFFECTIVE [None]
